FAERS Safety Report 6208440-5 (Version None)
Quarter: 2009Q2

REPORT INFORMATION
  Report Type: 
  Country: None (occurrence: None)
  Receive Date: 20090529
  Receipt Date: 20090519
  Transmission Date: 20091009
  Serious: Yes (Other)
  Sender: FDA-Public Use
  Company Number: US-ELI_LILLY_AND_COMPANY-US200905004711

PATIENT
  Age: 19 Year
  Sex: Female
  Weight: 58.957 kg

DRUGS (2)
  1. STRATTERA [Suspect]
     Dosage: 25 MG, 2/D
     Route: 065
     Dates: start: 20080801, end: 20090301
  2. TOPAMAX [Concomitant]

REACTIONS (1)
  - SYNCOPE [None]
